FAERS Safety Report 11129677 (Version 1)
Quarter: 2015Q2

REPORT INFORMATION
  Report Type: Spontaneous
  Country: CA (occurrence: CA)
  Receive Date: 20150521
  Receipt Date: 20150521
  Transmission Date: 20150821
  Serious: Yes (Other)
  Sender: FDA-Public Use
  Company Number: CA-009507513-1505CAN009923

PATIENT
  Sex: Male

DRUGS (2)
  1. DAPTOMYCIN. [Suspect]
     Active Substance: DAPTOMYCIN
     Indication: ENDOCARDITIS ENTEROCOCCAL
     Dosage: 6 MG/KG, QD
  2. GENTAMICIN. [Concomitant]
     Active Substance: GENTAMICIN
     Dosage: UNK

REACTIONS (5)
  - Off label use [Unknown]
  - Antimicrobial susceptibility test resistant [Unknown]
  - Creatinine renal clearance decreased [Unknown]
  - Bacteraemia [Unknown]
  - Drug ineffective for unapproved indication [Unknown]
